FAERS Safety Report 11048755 (Version 3)
Quarter: 2015Q3

REPORT INFORMATION
  Report Type: Report from Study
  Country: US (occurrence: US)
  Receive Date: 20150420
  Receipt Date: 20150928
  Transmission Date: 20151125
  Serious: Yes (Hospitalization, Other)
  Sender: FDA-Public Use
  Company Number: US-GILEAD-2015-0149326

PATIENT
  Age: 52 Year
  Sex: Male

DRUGS (4)
  1. SILDENAFIL. [Concomitant]
     Active Substance: SILDENAFIL
  2. LISINOPRIL. [Concomitant]
     Active Substance: LISINOPRIL
  3. AMBRISENTAN [Suspect]
     Active Substance: AMBRISENTAN
     Indication: PULMONARY ARTERIAL HYPERTENSION
     Dosage: 10 MG, QD
     Route: 065
     Dates: start: 20120925
  4. BUMETANIDE. [Concomitant]
     Active Substance: BUMETANIDE

REACTIONS (7)
  - Cyanosis [Unknown]
  - Walking distance test abnormal [Unknown]
  - Dyspnoea exertional [Unknown]
  - Haemoglobin decreased [Not Recovered/Not Resolved]
  - Haemoptysis [Recovered/Resolved]
  - Pulmonary arterial hypertension [Unknown]
  - Iron deficiency [Unknown]

NARRATIVE: CASE EVENT DATE: 201502
